FAERS Safety Report 18275275 (Version 2)
Quarter: 2020Q4

REPORT INFORMATION
  Report Type: Spontaneous
  Country: US (occurrence: US)
  Receive Date: 20200916
  Receipt Date: 20201007
  Transmission Date: 20210113
  Serious: Yes (Other)
  Sender: FDA-Public Use
  Company Number: NVSC2020US244270

PATIENT
  Age: 42 Year
  Sex: Female

DRUGS (1)
  1. OXALIPLATIN. [Suspect]
     Active Substance: OXALIPLATIN
     Indication: SMALL INTESTINE ADENOCARCINOMA
     Dosage: UNK
     Route: 065

REACTIONS (8)
  - Iatrogenic metastasis [Unknown]
  - Metastases to abdominal cavity [Unknown]
  - Metastases to peritoneum [Unknown]
  - Metastases to pelvis [Unknown]
  - Metastases to abdominal wall [Unknown]
  - Nodule [Unknown]
  - Metastases to liver [Unknown]
  - Product use in unapproved indication [Unknown]

NARRATIVE: CASE EVENT DATE: 202006
